FAERS Safety Report 13397793 (Version 2)
Quarter: 2017Q2

REPORT INFORMATION
  Report Type: Spontaneous
  Country: JP (occurrence: JP)
  Receive Date: 20170403
  Receipt Date: 20170411
  Transmission Date: 20170830
  Serious: Yes (Hospitalization, Other)
  Sender: FDA-Public Use
  Company Number: JP-JNJFOC-20170333351

PATIENT
  Age: 14 Year
  Sex: Male
  Weight: 77 kg

DRUGS (1)
  1. RISPERDAL [Suspect]
     Active Substance: RISPERIDONE
     Indication: NEURODEVELOPMENTAL DISORDER
     Route: 048
     Dates: start: 20170329, end: 20170329

REACTIONS (4)
  - Product use in unapproved indication [Unknown]
  - Toxicity to various agents [Recovered/Resolved]
  - Overdose [Unknown]
  - Off label use [Unknown]

NARRATIVE: CASE EVENT DATE: 20170329
